FAERS Safety Report 5739144-0 (Version None)
Quarter: 2008Q2

REPORT INFORMATION
  Report Type: 
  Country: None (occurrence: None)
  Receive Date: 20080515
  Receipt Date: 20080507
  Transmission Date: 20081010
  Serious: Yes (Other)
  Sender: FDA-Public Use
  Company Number: B0360503A

PATIENT
  Age: 33 Year
  Sex: Female

DRUGS (4)
  1. PAROXETINE HCL [Suspect]
     Route: 065
     Dates: start: 19960702
  2. DIAZEPAM [Concomitant]
     Dates: start: 20051115
  3. RANITIDINE [Concomitant]
     Dates: start: 19990301
  4. LANSOPRAZOL [Concomitant]

REACTIONS (20)
  - ANXIETY [None]
  - APATHY [None]
  - CRYING [None]
  - DECREASED APPETITE [None]
  - DEPRESSED MOOD [None]
  - DISTURBANCE IN ATTENTION [None]
  - DIZZINESS [None]
  - DRUG INTOLERANCE [None]
  - DRUG WITHDRAWAL SYNDROME [None]
  - FEELING ABNORMAL [None]
  - GASTROOESOPHAGEAL REFLUX DISEASE [None]
  - HEADACHE [None]
  - HYPERSOMNIA [None]
  - ILL-DEFINED DISORDER [None]
  - MUSCLE FATIGUE [None]
  - NAUSEA [None]
  - NONSPECIFIC REACTION [None]
  - SUICIDAL IDEATION [None]
  - VISUAL DISTURBANCE [None]
  - VOMITING [None]
